FAERS Safety Report 10510937 (Version 6)
Quarter: 2015Q4

REPORT INFORMATION
  Report Type: Other
  Country: IE (occurrence: IE)
  Receive Date: 20141010
  Receipt Date: 20151228
  Transmission Date: 20160304
  Serious: Yes (Other)
  Sender: FDA-Public Use
  Company Number: IE-SHIRE-IE201405984

PATIENT
  Age: 7 Year
  Sex: Male
  Weight: 37 kg

DRUGS (8)
  1. RANITIDINE [Concomitant]
     Active Substance: RANITIDINE\RANITIDINE HYDROCHLORIDE
     Indication: PREMEDICATION
     Dosage: 100 MG, 1X/WEEK
     Route: 048
     Dates: start: 20131129
  2. ELAPRASE [Suspect]
     Active Substance: IDURSULFASE
     Indication: MUCOPOLYSACCHARIDOSIS II
     Dosage: 18 MG, 1X/WEEK
     Route: 041
  3. ELAPRASE [Suspect]
     Active Substance: IDURSULFASE
     Dosage: 12 MG, 1X/WEEK
     Route: 041
     Dates: start: 20120416
  4. ELAPRASE [Suspect]
     Active Substance: IDURSULFASE
     Dosage: 0.5 MG/KG, UNKNOWN
     Route: 041
     Dates: start: 20080710
  5. PREDNISOLONE. [Concomitant]
     Active Substance: PREDNISOLONE
     Indication: PREMEDICATION
     Dosage: 5 MG, 1X/WEEK (12 HOURS PRIOR TO ERT)
     Route: 048
     Dates: start: 20140603
  6. PARACETAMOL [Concomitant]
     Active Substance: ACETAMINOPHEN
     Indication: PREMEDICATION
     Dosage: UNK, 1X/WEEK (AS PER WEIGHT)
     Route: 048
     Dates: start: 20080710
  7. PREDNISOLONE. [Concomitant]
     Active Substance: PREDNISOLONE
     Dosage: 10 MG, 1X/WEEK (1 HOUR PRIOR TO ERT)
     Route: 048
     Dates: start: 20140603
  8. ZYRTEC [Concomitant]
     Active Substance: CETIRIZINE HYDROCHLORIDE
     Indication: PREMEDICATION
     Dosage: 5 MG, 1X/WEEK
     Route: 048
     Dates: start: 20131129

REACTIONS (3)
  - Cough [Unknown]
  - Lower respiratory tract infection [Recovered/Resolved]
  - Haematemesis [Unknown]

NARRATIVE: CASE EVENT DATE: 20140915
